FAERS Safety Report 14473698 (Version 2)
Quarter: 2018Q1

REPORT INFORMATION
  Report Type: Spontaneous
  Country: IE (occurrence: IE)
  Receive Date: 20180201
  Receipt Date: 20180221
  Transmission Date: 20180509
  Serious: Yes (Other)
  Sender: FDA-Public Use
  Company Number: IE-MYLANLABS-2018M1006159

PATIENT
  Age: 10 Month
  Sex: Female

DRUGS (4)
  1. SILDENAFIL. [Suspect]
     Active Substance: SILDENAFIL
     Indication: PULMONARY HYPERTENSION
     Dosage: 3 MG/KG, QD
     Route: 048
  2. BOSENTAN. [Suspect]
     Active Substance: BOSENTAN
     Indication: PULMONARY ARTERIAL PRESSURE INCREASED
     Dosage: 2 MG/KG, QD
  3. BOSENTAN. [Suspect]
     Active Substance: BOSENTAN
     Indication: PULMONARY HYPERTENSION
  4. OXYGEN. [Concomitant]
     Active Substance: OXYGEN
     Indication: OXYGEN SATURATION DECREASED
     Dosage: UNK

REACTIONS (5)
  - Coronary artery disease [Unknown]
  - Congenital coronary artery malformation [Recovered/Resolved]
  - Endothelial dysfunction [Unknown]
  - Drug administered to patient of inappropriate age [Unknown]
  - Coronary artery dilatation [Recovered/Resolved]
